FAERS Safety Report 14740191 (Version 2)
Quarter: 2018Q2

REPORT INFORMATION
  Report Type: Spontaneous
  Country: US (occurrence: US)
  Receive Date: 20180410
  Receipt Date: 20180605
  Transmission Date: 20180711
  Serious: Yes (Other)
  Sender: FDA-Public Use
  Company Number: US-ASTRAZENECA-2018SE43121

PATIENT
  Age: 736 Month
  Sex: Male
  Weight: 117.9 kg

DRUGS (28)
  1. NIACIN. [Concomitant]
     Active Substance: NIACIN
     Indication: BONE DISORDER
     Dosage: TWO TIMES A DAY
     Route: 048
  2. NIACIN. [Concomitant]
     Active Substance: NIACIN
     Indication: CARDIAC DISORDER
     Dosage: TWO TIMES A DAY
     Route: 048
  3. FISH OIL [Concomitant]
     Active Substance: FISH OIL
     Indication: CARDIAC DISORDER
     Dosage: TWO TIMES A DAY
     Route: 048
  4. MILK CHISTLE [Concomitant]
     Indication: DIABETES MELLITUS
     Route: 048
  5. MILK CHISTLE [Concomitant]
     Indication: BONE DISORDER
     Route: 048
  6. VITAMIN B12 [Concomitant]
     Active Substance: CYANOCOBALAMIN
     Dosage: DAILY
     Route: 048
  7. GLIMEPIRIDE. [Concomitant]
     Active Substance: GLIMEPIRIDE
     Dosage: DAILY
     Route: 048
  8. VITAMIN E [Concomitant]
     Active Substance: .ALPHA.-TOCOPHEROL
     Indication: BONE DISORDER
     Dosage: DAILY
     Route: 047
  9. MILK CHISTLE [Concomitant]
     Indication: CARDIAC DISORDER
     Route: 048
  10. BYDUREON [Suspect]
     Active Substance: EXENATIDE
     Indication: TYPE 2 DIABETES MELLITUS
     Dosage: ONCE A WEEK IN 2016 OR 2017
     Route: 058
  11. CLAVIX [Concomitant]
     Indication: CORONARY ARTERY OCCLUSION
     Route: 048
  12. GABAPENTIN. [Concomitant]
     Active Substance: GABAPENTIN
     Dosage: DAILY
  13. VITAMIN E [Concomitant]
     Active Substance: .ALPHA.-TOCOPHEROL
     Indication: DIABETES MELLITUS
     Dosage: DAILY
     Route: 047
  14. COQ [Concomitant]
     Indication: BONE DISORDER
     Dosage: DAILY
     Route: 048
  15. METFORMIN [Concomitant]
     Active Substance: METFORMIN HYDROCHLORIDE
     Indication: TYPE 2 DIABETES MELLITUS
     Dosage: TWO TIMES A DAY
     Route: 048
  16. FISH OIL [Concomitant]
     Active Substance: FISH OIL
     Indication: BONE DISORDER
     Dosage: TWO TIMES A DAY
     Route: 048
  17. VITAMIN E [Concomitant]
     Active Substance: .ALPHA.-TOCOPHEROL
     Indication: CARDIAC DISORDER
     Dosage: DAILY
     Route: 047
  18. COQ [Concomitant]
     Indication: CARDIAC DISORDER
     Dosage: DAILY
     Route: 048
  19. MULTIVITAMIN [Concomitant]
     Active Substance: VITAMINS
     Indication: THERAPY CESSATION
     Dosage: DAILY
     Route: 048
  20. OMEPRAZOLE. [Suspect]
     Active Substance: OMEPRAZOLE
     Indication: ABDOMINAL DISCOMFORT
     Dosage: TWO TIMES A DAY
     Route: 048
  21. VITAMIN D3 [Concomitant]
     Active Substance: CHOLECALCIFEROL
     Dosage: DAILY
     Route: 048
  22. LOSARTAN. [Concomitant]
     Active Substance: LOSARTAN
     Indication: BLOOD PRESSURE ABNORMAL
  23. ALLOPURINOL. [Concomitant]
     Active Substance: ALLOPURINOL
     Indication: GOUT
     Route: 048
  24. NIACIN. [Concomitant]
     Active Substance: NIACIN
     Indication: DIABETES MELLITUS
     Dosage: TWO TIMES A DAY
     Route: 048
  25. COQ [Concomitant]
     Indication: DIABETES MELLITUS
     Dosage: DAILY
     Route: 048
  26. HYDROCHLOROTHIAZIDE. [Concomitant]
     Active Substance: HYDROCHLOROTHIAZIDE
     Indication: BLOOD PRESSURE ABNORMAL
  27. PRAVASTATIN. [Concomitant]
     Active Substance: PRAVASTATIN
     Indication: CORONARY ARTERY OCCLUSION
     Route: 048
     Dates: start: 2017
  28. FISH OIL [Concomitant]
     Active Substance: FISH OIL
     Indication: DIABETES MELLITUS
     Dosage: TWO TIMES A DAY
     Route: 048

REACTIONS (17)
  - Bone disorder [Unknown]
  - Lung disorder [Unknown]
  - Micturition disorder [Unknown]
  - Needle issue [Unknown]
  - Device issue [Unknown]
  - Gout [Unknown]
  - Coronary artery restenosis [Unknown]
  - Coronary artery occlusion [Unknown]
  - Injection site pain [Unknown]
  - Glycosylated haemoglobin increased [Unknown]
  - Dyspnoea [Unknown]
  - Injection site haemorrhage [Unknown]
  - Chronic obstructive pulmonary disease [Unknown]
  - Cardiac disorder [Unknown]
  - Blood pressure abnormal [Unknown]
  - Blood glucose abnormal [Unknown]
  - Injection site mass [Unknown]

NARRATIVE: CASE EVENT DATE: 201706
